FAERS Safety Report 7564298-3 (Version None)
Quarter: 2011Q2

REPORT INFORMATION
  Report Type: 
  Country: None (occurrence: None)
  Receive Date: 20110622
  Receipt Date: 20110616
  Transmission Date: 20111010
  Serious: Yes (Hospitalization, Other)
  Sender: FDA-Public Use
  Company Number: AU-PFIZER INC-2011134615

PATIENT
  Age: 68 Year
  Sex: Female

DRUGS (18)
  1. VARENICLINE TARTRATE [Suspect]
     Dosage: 2 MG, DAILY
     Route: 048
     Dates: start: 20110401, end: 20110601
  2. CARDIZEM [Concomitant]
     Dosage: 180 MG, SINGLE
     Route: 048
  3. FERROUS SULFATE TAB [Concomitant]
     Dosage: 10 ML, SINGLE
     Route: 048
  4. LASIX [Concomitant]
     Dosage: 40 MG, SINGLE
     Route: 048
  5. MAXOLON [Concomitant]
     Dosage: 10 MG, AS NEEDED
     Route: 048
  6. NITROLINGUAL PUMPSPRAY [Concomitant]
     Dosage: AS NECESSARY
     Route: 060
  7. PANAMAX [Concomitant]
     Dosage: AS NECESSARY
     Route: 048
  8. TRAMADOL HCL [Suspect]
     Dosage: 150 MG, UNK
     Route: 048
     Dates: start: 20091115, end: 20110601
  9. LIPITOR [Concomitant]
     Dosage: 80 MG, SINGLE
     Route: 048
  10. PLAVIX [Concomitant]
     Dosage: 75 MG, SINGLE
     Route: 048
  11. IMDUR [Concomitant]
     Dosage: 60 MG, SINGLE
     Route: 048
  12. AIROMIR [Concomitant]
     Dosage: UNK
     Route: 055
  13. ASPIRIN [Concomitant]
     Dosage: 100 MG, SINGLE
     Route: 048
  14. PERINDOPRIL ERBUMINE [Concomitant]
     Dosage: 5 MG, SINGLE
     Route: 048
  15. METFORMIN HCL [Concomitant]
     Dosage: 1000 MG, SINGLE
     Route: 048
  16. DIPROSONE [Concomitant]
     Dosage: 3 UNSPECIFIED DOSES; 3 TIMES
     Route: 061
  17. PRILOSEC [Concomitant]
     Dosage: 40 MG, 2 TIMES
     Route: 048
  18. SERETIDE [Concomitant]
     Dosage: 2 UNSPECIFIED DOSES; 2 TIMES
     Route: 055

REACTIONS (4)
  - MUSCLE TWITCHING [None]
  - AMNESIA [None]
  - MYDRIASIS [None]
  - CONFUSIONAL STATE [None]
